FAERS Safety Report 8016388-9 (Version None)
Quarter: 2011Q4

REPORT INFORMATION
  Report Type: 
  Country: None (occurrence: None)
  Receive Date: 20111230
  Receipt Date: 20111215
  Transmission Date: 20120403
  Serious: No
  Sender: FDA-Public Use
  Company Number: US-ELI_LILLY_AND_COMPANY-US201104005452

PATIENT
  Sex: Male

DRUGS (10)
  1. CIALIS [Suspect]
     Dosage: 10 MG, QD
  2. LISINOPRIL [Concomitant]
     Dosage: 1 DF, UNK
  3. WELLBUTRIN [Concomitant]
  4. PROZAC [Suspect]
     Indication: PANIC ATTACK
  5. TOPROL-XL [Concomitant]
     Dosage: 1 DF, UNK
  6. CYMBALTA [Concomitant]
     Indication: DEPRESSION
     Dosage: 60 MG, QD
  7. DEPAKOTE [Concomitant]
     Dosage: 1 DF, UNK
  8. LITHIUM [Concomitant]
  9. CIALIS [Suspect]
     Indication: ERECTILE DYSFUNCTION
     Dosage: 5 MG, QD
  10. ZOLOFT [Concomitant]

REACTIONS (10)
  - MUSCLE INJURY [None]
  - THERAPEUTIC RESPONSE DECREASED [None]
  - DRUG INEFFECTIVE [None]
  - VISUAL IMPAIRMENT [None]
  - INTENTIONAL DRUG MISUSE [None]
  - ARTHRALGIA [None]
  - HAEMATOCHEZIA [None]
  - HEADACHE [None]
  - MUSCLE SPASMS [None]
  - FLUSHING [None]
